FAERS Safety Report 8117988-8 (Version None)
Quarter: 2012Q1

REPORT INFORMATION
  Report Type: 
  Country: None (occurrence: None)
  Receive Date: 20120202
  Receipt Date: 20120124
  Transmission Date: 20120608
  Serious: Yes (Other)
  Sender: FDA-Public Use
  Company Number: 2012SP004570

PATIENT
  Age: 62 Year
  Sex: Female
  Weight: 60 kg

DRUGS (2)
  1. RIBAVIRIN [Suspect]
     Indication: HEPATITIS C
     Dosage: 800 MG; QD
     Dates: start: 20080205, end: 20101108
  2. VIRAFERONPEG [Suspect]
     Indication: HEPATITIS C
     Dosage: 40 MCG; QW
     Dates: start: 20080205, end: 20101106

REACTIONS (1)
  - GAMMA-GLUTAMYLTRANSFERASE INCREASED [None]
